FAERS Safety Report 9170102 (Version 1)
Quarter: 2013Q1

REPORT INFORMATION
  Report Type: Spontaneous
  Country: US (occurrence: None)
  Receive Date: 20130307
  Receipt Date: 20130307
  Transmission Date: 20140127
  Serious: Yes (Other)
  Sender: FDA-Public Use
  Company Number: TPA2012A08039

PATIENT
  Age: 63 Year
  Sex: Male

DRUGS (6)
  1. ACTOS (PIOGLITAZONE HYDROCHLORIDE) [Suspect]
     Indication: TYPE 2 DIABETES MELLITUS
     Dates: start: 1999, end: 2002
  2. METFORMIN [Concomitant]
  3. GLUCOPHAGE [Concomitant]
  4. HUMALOG [Concomitant]
  5. LANTUS [Concomitant]
  6. GLUCOTROL [Concomitant]

REACTIONS (2)
  - Bladder cancer [None]
  - Streptococcal sepsis [None]
